FAERS Safety Report 10688247 (Version 1)
Quarter: 2014Q4

REPORT INFORMATION
  Report Type: Spontaneous
  Country: US (occurrence: None)
  Receive Date: 20141231
  Receipt Date: 20141231
  Transmission Date: 20150529
  Serious: Yes (Hospitalization)
  Sender: FDA-Public Use
  Company Number: AXC-2014-000789

PATIENT
  Age: 54 Year
  Sex: Female

DRUGS (20)
  1. TESSALON [Concomitant]
     Active Substance: BENZONATATE
  2. CARAFATE [Suspect]
     Active Substance: SUCRALFATE
     Indication: GASTRITIS
     Route: 048
     Dates: start: 20071025
  3. OCRELIZUMAB [Suspect]
     Active Substance: OCRELIZUMAB
     Indication: SYSTEMIC LUPUS ERYTHEMATOSUS
     Dosage: 400 MG, ON DAY 1 AND 15 EVERY 6 MONTHS, INTRAVENOUS
     Route: 042
     Dates: start: 20080414
  4. ZANAFLEX [Suspect]
     Active Substance: TIZANIDINE HYDROCHLORIDE
     Indication: MUSCLE SPASMS
     Dosage: 4 MG, PRN QD, ORAL
     Route: 048
     Dates: start: 20011130
  5. MEDROL (METHYLPREDNISOLONE) [Concomitant]
  6. FLORINEF (FLUDROCORTISONE ACETATE) [Concomitant]
  7. XOPENEX (LEVOSALBUTAMOL HYDROCHLORIDE) [Concomitant]
  8. AVELOX (MOXIFLOXACIN HYDROCHLORIDE) [Concomitant]
  9. CRESTOR [Concomitant]
     Active Substance: ROSUVASTATIN CALCIUM
  10. COMPAZINE [Suspect]
     Active Substance: PROCHLORPERAZINE MALEATE
     Indication: MIGRAINE
     Route: 048
     Dates: start: 20050708
  11. VALIUM [Concomitant]
     Active Substance: DIAZEPAM
  12. ZOMIG (ZOLMITRIPTAN) [Concomitant]
  13. TOPAMAX [Suspect]
     Active Substance: TOPIRAMATE
     Indication: MIGRAINE
     Route: 048
     Dates: start: 20040817
  14. NEXIUM [Concomitant]
     Active Substance: ESOMEPRAZOLE MAGNESIUM
  15. TOPAMAX [Suspect]
     Active Substance: TOPIRAMATE
     Indication: SEIZURE
     Route: 048
     Dates: start: 20040817
  16. FLEXERIL [Suspect]
     Active Substance: CYCLOBENZAPRINE HYDROCHLORIDE
     Indication: MUSCLE SPASMS
     Route: 048
     Dates: start: 20061226
  17. VIOKASE [Suspect]
     Active Substance: PANCRELIPASE
     Indication: PANCREATITIS
     Route: 048
     Dates: start: 200209
  18. PANCRELIPASE TM [Suspect]
     Active Substance: PANCRELIPASE
     Indication: PANCREATITIS
     Dosage: 10000 USP, QD, ORAL
     Route: 048
     Dates: start: 200709
  19. AMBIEN [Concomitant]
     Active Substance: ZOLPIDEM TARTRATE
  20. FOLINIC ACID (FOLINIC ACID) [Concomitant]
     Active Substance: LEUCOVORIN

REACTIONS (4)
  - Off label use [None]
  - Upper respiratory tract infection [None]
  - Asthma [None]
  - Throat tightness [None]

NARRATIVE: CASE EVENT DATE: 20071025
